FAERS Safety Report 10170921 (Version 1)
Quarter: 2014Q2

REPORT INFORMATION
  Report Type: Spontaneous
  Country: US (occurrence: None)
  Receive Date: 20140424
  Receipt Date: 20140424
  Transmission Date: 20141212
  Serious: Yes (Other)
  Sender: FDA-Public Use
  Company Number: 1597701

PATIENT
  Age: 53 Year
  Sex: Male

DRUGS (1)
  1. POTASSIUM CHLORIDE [Suspect]
     Indication: CORONARY ARTERY BYPASS
     Dosage: UNKNOWN, UNKNOWN, UNKNOWN , UNKNOWN UNKNOWN THERAPY DATES

REACTIONS (2)
  - Off label use [None]
  - Drug ineffective for unapproved indication [None]
